FAERS Safety Report 7430876-5 (Version None)
Quarter: 2011Q2

REPORT INFORMATION
  Report Type: 
  Country: None (occurrence: None)
  Receive Date: 20110421
  Receipt Date: 20110412
  Transmission Date: 20111010
  Serious: Yes (Hospitalization)
  Sender: FDA-Public Use
  Company Number: JP-JNJFOC-20110302323

PATIENT
  Sex: Female
  Weight: 38 kg

DRUGS (18)
  1. GOLIMUMAB [Suspect]
     Indication: RHEUMATOID ARTHRITIS
     Route: 058
  2. GOLIMUMAB [Suspect]
     Route: 058
  3. ALFAROL [Concomitant]
     Indication: PROPHYLAXIS
     Route: 048
  4. SELBEX [Concomitant]
     Indication: GASTRITIS PROPHYLAXIS
     Route: 048
  5. MOHRUS TAPE [Concomitant]
     Indication: RHEUMATOID ARTHRITIS
     Route: 061
  6. CLARITH [Concomitant]
     Route: 048
  7. MUCOSOLVAN [Concomitant]
     Route: 048
  8. RHEUMATREX [Suspect]
     Indication: RHEUMATOID ARTHRITIS
     Route: 048
  9. ADALAT CC [Concomitant]
     Indication: HYPERTENSION
     Route: 048
  10. LOXONIN [Concomitant]
     Indication: RHEUMATOID ARTHRITIS
     Route: 048
  11. THYRADIN S [Concomitant]
     Indication: HYPERTHYROIDISM
     Route: 048
  12. HOKUNALIN [Concomitant]
     Route: 062
  13. MUCODYNE [Concomitant]
     Route: 048
  14. METOPROLOL TARTRATE [Concomitant]
     Indication: HYPERTENSION
     Route: 048
  15. PROTECADIN [Concomitant]
     Indication: GASTRITIS PROPHYLAXIS
     Route: 048
  16. MOBIC [Concomitant]
     Indication: RHEUMATOID ARTHRITIS
     Route: 048
  17. FOLIC ACID [Concomitant]
     Indication: VITAMIN SUPPLEMENTATION
     Route: 048
  18. SPIRIVA [Concomitant]
     Route: 048

REACTIONS (1)
  - PNEUMONIA PNEUMOCOCCAL [None]
